FAERS Safety Report 4432389-1 (Version None)
Quarter: 2004Q3

REPORT INFORMATION
  Report Type: 
  Country: None (occurrence: None)
  Receive Date: 20040825
  Receipt Date: 20040819
  Transmission Date: 20050211
  Serious: Yes (Other)
  Sender: FDA-Public Use
  Company Number: US-GLAXOSMITHKLINE-A0523224A

PATIENT
  Age: 26 Year
  Sex: Female

DRUGS (1)
  1. PAXIL [Suspect]
     Indication: DEPRESSION
     Dosage: 30MG TWICE PER DAY
     Route: 048
     Dates: start: 19990801, end: 20021009

REACTIONS (4)
  - APHASIA [None]
  - FACIAL PALSY [None]
  - MENTAL IMPAIRMENT [None]
  - MUSCLE TWITCHING [None]
